FAERS Safety Report 16850782 (Version 1)
Quarter: 2019Q3

REPORT INFORMATION
  Report Type: Spontaneous
  Country: US (occurrence: US)
  Receive Date: 20190925
  Receipt Date: 20190925
  Transmission Date: 20191005
  Serious: No
  Sender: FDA-Public Use
  Company Number: US-THERAPEUTICSMD-2019TMD01223

PATIENT
  Age: 77 Year
  Sex: Female

DRUGS (2)
  1. IMVEXXY [Suspect]
     Active Substance: ESTRADIOL
     Indication: CYSTITIS
  2. IMVEXXY [Suspect]
     Active Substance: ESTRADIOL
     Indication: VULVOVAGINAL DRYNESS
     Dosage: UNK
     Route: 067
     Dates: start: 20190521

REACTIONS (3)
  - Pollakiuria [Not Recovered/Not Resolved]
  - Dysuria [Not Recovered/Not Resolved]
  - Drug ineffective for unapproved indication [Not Recovered/Not Resolved]

NARRATIVE: CASE EVENT DATE: 201905
